FAERS Safety Report 19012588 (Version 1)
Quarter: 2021Q1

REPORT INFORMATION
  Report Type: Spontaneous
  Country: MX (occurrence: MX)
  Receive Date: 20210316
  Receipt Date: 20210316
  Transmission Date: 20210420
  Serious: Yes (Other)
  Sender: FDA-Public Use
  Company Number: MX-PFIZER INC-2021229487

PATIENT
  Age: 53 Year
  Sex: Female

DRUGS (1)
  1. LEDERTREXATE [Suspect]
     Active Substance: METHOTREXATE
     Dosage: 8 DF, WEEKLY

REACTIONS (1)
  - Thrombosis [Unknown]
